FAERS Safety Report 6241393-2 (Version None)
Quarter: 2009Q2

REPORT INFORMATION
  Report Type: 
  Country: None (occurrence: None)
  Receive Date: 20090619
  Receipt Date: 20090619
  Transmission Date: 20091009
  Serious: No
  Sender: FDA-Public Use
  Company Number: None

PATIENT
  Age: 68 Year
  Sex: Male
  Weight: 131.5431 kg

DRUGS (1)
  1. ZICAM 15ML LIQUID NASAL GEL ZICAM LLC PHOENIX, AZ [Suspect]
     Indication: NASOPHARYNGITIS
     Dosage: ONE SQUIRT EVERY 4 HOURS NASAL
     Route: 045
     Dates: start: 20070925, end: 20070927

REACTIONS (1)
  - ANOSMIA [None]
